FAERS Safety Report 9322144 (Version 1)
Quarter: 2013Q2

REPORT INFORMATION
  Report Type: Spontaneous
  Country: US (occurrence: None)
  Receive Date: 20130530
  Receipt Date: 20130530
  Transmission Date: 20140414
  Serious: No
  Sender: FDA-Public Use
  Company Number: None

PATIENT
  Age: 51 Year
  Sex: Female
  Weight: 67.3 kg

DRUGS (1)
  1. LOSARTAN [Suspect]
     Indication: HYPERTENSION
     Dosage: 100 MG EVERY DAY PO
     Route: 048
     Dates: start: 20121217, end: 20130506

REACTIONS (2)
  - Cough [None]
  - Wheezing [None]
